FAERS Safety Report 4715951-8 (Version None)
Quarter: 2005Q3

REPORT INFORMATION
  Report Type: 
  Country: None (occurrence: None)
  Receive Date: 20050718
  Receipt Date: 20050311
  Transmission Date: 20060218
  Serious: Yes (Hospitalization)
  Sender: FDA-Public Use
  Company Number: US-MERCK-0503USA02688

PATIENT
  Age: 56 Year
  Sex: Male
  Weight: 95 kg

DRUGS (3)
  1. VIOXX [Suspect]
     Indication: MONARTHRITIS
     Route: 048
     Dates: start: 20030103, end: 20030101
  2. VIOXX [Suspect]
     Route: 048
     Dates: start: 20030225, end: 20040930
  3. TENORETIC 100 [Concomitant]
     Indication: HYPERTENSION
     Route: 065

REACTIONS (9)
  - BRONCHITIS [None]
  - CARDIAC DISORDER [None]
  - CORONARY ARTERY ATHEROSCLEROSIS [None]
  - CORONARY ARTERY DISEASE [None]
  - CORONARY ARTERY OCCLUSION [None]
  - DYSLIPIDAEMIA [None]
  - HYPERCHOLESTEROLAEMIA [None]
  - MYOCARDIAL INFARCTION [None]
  - OTITIS EXTERNA [None]
